FAERS Safety Report 4543355-X (Version None)
Quarter: 2005Q1

REPORT INFORMATION
  Report Type: 
  Country: None (occurrence: None)
  Receive Date: 20050103
  Receipt Date: 20041222
  Transmission Date: 20050727
  Serious: Yes (Hospitalization, Other)
  Sender: FDA-Public Use
  Company Number: GB-BRISTOL-MYERS SQUIBB COMPANY-12803516

PATIENT
  Age: 54 Year
  Sex: Female

DRUGS (6)
  1. CARBOPLATIN [Suspect]
     Indication: OVARIAN CANCER
     Dosage: RECEIVED ONLY ON DAY ONE OF A 21-DAY CYCLE
     Route: 042
     Dates: end: 20041015
  2. PACLITAXEL [Suspect]
     Indication: OVARIAN CANCER
     Dosage: RECEIVED ONLY ON DAY ONE OF A 21-DAY CYCLE
     Route: 042
     Dates: end: 20041015
  3. GEMZAR [Suspect]
     Indication: OVARIAN CANCER
     Dosage: RECEIVED ON DAY ONE AND EIGHT OF A 21-DAY CYCLE
     Route: 042
     Dates: end: 20041022
  4. MIRTAZAPINE [Concomitant]
     Dates: end: 20041024
  5. ESCITALOPRAM [Concomitant]
  6. ZOPICLONE [Concomitant]

REACTIONS (8)
  - AGGRESSION [None]
  - CONFUSIONAL STATE [None]
  - DYSARTHRIA [None]
  - MEMORY IMPAIRMENT [None]
  - MOOD SWINGS [None]
  - PANCYTOPENIA [None]
  - PARANOIA [None]
  - THROMBOCYTOPENIA [None]
